FAERS Safety Report 7850636-0 (Version None)
Quarter: 2011Q4

REPORT INFORMATION
  Report Type: 
  Country: None (occurrence: None)
  Receive Date: 20111026
  Receipt Date: 20111020
  Transmission Date: 20120403
  Serious: Yes (Hospitalization, Other)
  Sender: FDA-Public Use
  Company Number: US-B.I. PHARMACEUTICALS,INC./RIDGEFIELD-2011-BP-09288BP

PATIENT
  Age: 82 Year
  Sex: Male
  Weight: 86.18 kg

DRUGS (11)
  1. FLOMAX [Concomitant]
     Dosage: 0.4 MG
  2. DEPLIN [Concomitant]
  3. SYNTHROID [Concomitant]
     Dosage: 75 MCG
  4. MELATONIN [Concomitant]
  5. RAMIPRIL [Concomitant]
  6. PAXIL [Concomitant]
     Dosage: 30 MG
  7. PRADAXA [Suspect]
     Indication: ATRIAL FIBRILLATION
     Dosage: 300 MG
     Route: 048
     Dates: start: 20110319, end: 20110324
  8. METOPROLOL TARTRATE [Concomitant]
     Dosage: 25 MG
  9. LIPITOR [Concomitant]
  10. PROSCAR [Concomitant]
     Dosage: 5 MG
  11. SIMVASTATIN [Concomitant]
     Dosage: 10 MG

REACTIONS (6)
  - GOUT [None]
  - HAEMATOCHEZIA [None]
  - COLON ADENOMA [None]
  - COLON CANCER [None]
  - GASTRITIS [None]
  - GASTROINTESTINAL HAEMORRHAGE [None]
